FAERS Safety Report 15981759 (Version 1)
Quarter: 2019Q1

REPORT INFORMATION
  Report Type: Spontaneous
  Country: US (occurrence: US)
  Receive Date: 20190219
  Receipt Date: 20190219
  Transmission Date: 20190418
  Serious: No
  Sender: FDA-Public Use
  Company Number: None

PATIENT
  Age: 33 Year
  Sex: Female
  Weight: 55.35 kg

DRUGS (4)
  1. AJOVY [Suspect]
     Active Substance: FREMANEZUMAB-VFRM
     Indication: MIGRAINE
     Dosage: ?          QUANTITY:1 INJECTION(S);OTHER FREQUENCY:1 SHOT A MONTH;OTHER ROUTE:INJECT INTO THE SKIN?
     Dates: start: 20181201
  2. MAXALT [Concomitant]
     Active Substance: RIZATRIPTAN BENZOATE
  3. AJOVI [Concomitant]
  4. ADDERALL [Concomitant]
     Active Substance: AMPHETAMINE ASPARTATE\AMPHETAMINE SULFATE\DEXTROAMPHETAMINE SACCHARATE\DEXTROAMPHETAMINE SULFATE

REACTIONS (3)
  - Hyperaesthesia [None]
  - Contusion [None]
  - Skin haemorrhage [None]

NARRATIVE: CASE EVENT DATE: 20190101
